FAERS Safety Report 5975231-X (Version None)
Quarter: 2008Q4

REPORT INFORMATION
  Report Type: 
  Country: None (occurrence: None)
  Receive Date: 20081202
  Receipt Date: 20081003
  Transmission Date: 20090506
  Serious: No
  Sender: FDA-Public Use
  Company Number: US-BAYER-200813988BCC

PATIENT
  Age: 61 Year
  Sex: Female

DRUGS (4)
  1. ALEVE (CAPLET) [Suspect]
     Indication: BACK PAIN
     Dosage: TOTAL DAILY DOSE: 440 MG  UNIT DOSE: 220 MG
     Route: 048
     Dates: start: 20080929, end: 20081001
  2. TIMOLOL [Concomitant]
     Indication: GLAUCOMA
  3. ASPIRIN [Concomitant]
  4. HIGH BLOOD PRESSURE MEDICATION [Concomitant]

REACTIONS (1)
  - OEDEMA PERIPHERAL [None]
